FAERS Safety Report 8180715-2 (Version None)
Quarter: 2012Q1

REPORT INFORMATION
  Report Type: 
  Country: None (occurrence: None)
  Receive Date: 20120302
  Receipt Date: 20120216
  Transmission Date: 20120608
  Serious: Yes (Hospitalization)
  Sender: FDA-Public Use
  Company Number: CN-WATSON-2012-03108

PATIENT
  Age: 64 Year
  Sex: Male

DRUGS (1)
  1. BACLOFEN [Suspect]
     Indication: MYALGIA
     Dosage: 12.5 MG, SINGLE
     Route: 065

REACTIONS (7)
  - CONFUSIONAL STATE [None]
  - DISORIENTATION [None]
  - AGITATION [None]
  - HYPOREFLEXIA [None]
  - DELUSION [None]
  - ALTERED STATE OF CONSCIOUSNESS [None]
  - HALLUCINATION, VISUAL [None]
